FAERS Safety Report 13649000 (Version 1)
Quarter: 2017Q2

REPORT INFORMATION
  Report Type: Spontaneous
  Country: HR (occurrence: HR)
  Receive Date: 20170613
  Receipt Date: 20170613
  Transmission Date: 20170830
  Serious: Yes (Hospitalization)
  Sender: FDA-Public Use
  Company Number: HR-MYLANLABS-2017M1035291

PATIENT

DRUGS (2)
  1. PREDNISONE. [Suspect]
     Active Substance: PREDNISONE
     Indication: CREST SYNDROME
     Dosage: MAINTENANCE DOSE WAS 10MG DAILY
     Route: 065
  2. BETAMETHASONE. [Suspect]
     Active Substance: BETAMETHASONE
     Indication: CREST SYNDROME
     Route: 061

REACTIONS (3)
  - Tinea infection [Recovered/Resolved]
  - Trichophytosis [Recovered/Resolved]
  - Inappropriate prescribing [Recovering/Resolving]
